FAERS Safety Report 13355460 (Version 1)
Quarter: 2017Q1

REPORT INFORMATION
  Report Type: Spontaneous
  Country: DE (occurrence: DE)
  Receive Date: 20170321
  Receipt Date: 20170321
  Transmission Date: 20170429
  Serious: Yes (Hospitalization)
  Sender: FDA-Public Use
  Company Number: DE-PFIZER INC-2017112049

PATIENT
  Sex: Female

DRUGS (1)
  1. ATORVASTATIN CALCIUM. [Suspect]
     Active Substance: ATORVASTATIN CALCIUM
     Indication: LOW DENSITY LIPOPROTEIN INCREASED
     Dosage: 40 MG, UNK
     Dates: start: 2004

REACTIONS (4)
  - Skin fissures [Unknown]
  - Myalgia [Unknown]
  - Tendon pain [Unknown]
  - Tendon rupture [Unknown]

NARRATIVE: CASE EVENT DATE: 201611
